FAERS Safety Report 10357653 (Version 1)
Quarter: 2014Q3

REPORT INFORMATION
  Report Type: Spontaneous
  Country: US (occurrence: None)
  Receive Date: 20140730
  Receipt Date: 20140730
  Transmission Date: 20150326
  Serious: Yes (Other)
  Sender: FDA-Public Use
  Company Number: None

PATIENT
  Age: 75 Year
  Sex: Female
  Weight: 68.04 kg

DRUGS (2)
  1. WARFARIN SODIUM. [Suspect]
     Active Substance: WARFARIN SODIUM
     Dosage: 1 TABLET DAILY  ONCE DAILY TAKEN BY MOUTH
     Route: 048
     Dates: start: 20140716, end: 20140725
  2. WARFARIN SODIUM. [Suspect]
     Active Substance: WARFARIN SODIUM
     Indication: ANTICOAGULANT THERAPY
     Dosage: 1 TABLET DAILY  ONCE DAILY TAKEN BY MOUTH
     Route: 048
     Dates: start: 20140716, end: 20140725

REACTIONS (4)
  - Activities of daily living impaired [None]
  - Arthralgia [None]
  - Myalgia [None]
  - International normalised ratio increased [None]

NARRATIVE: CASE EVENT DATE: 20140715
